FAERS Safety Report 24013054 (Version 1)
Quarter: 2024Q2

REPORT INFORMATION
  Report Type: Spontaneous
  Country: KR (occurrence: KR)
  Receive Date: 20240626
  Receipt Date: 20240626
  Transmission Date: 20240716
  Serious: Yes (Hospitalization)
  Sender: FDA-Public Use
  Company Number: KR-NOVITIUMPHARMA-2024KRNVP01086

PATIENT
  Age: 14 Year
  Sex: Female

DRUGS (2)
  1. NAPROXEN [Suspect]
     Active Substance: NAPROXEN
     Indication: New daily persistent headache
     Route: 048
  2. ACETAMINOPHEN [Concomitant]
     Active Substance: ACETAMINOPHEN
     Indication: New daily persistent headache

REACTIONS (1)
  - Drug ineffective [Unknown]
